FAERS Safety Report 25477989 (Version 1)
Quarter: 2025Q2

REPORT INFORMATION
  Report Type: Spontaneous
  Country: US (occurrence: None)
  Receive Date: 20250624
  Receipt Date: 20250624
  Transmission Date: 20250717
  Serious: Yes (Hospitalization)
  Sender: FDA-CTU
  Company Number: None

PATIENT
  Age: 63 Year
  Sex: Female

DRUGS (1)
  1. INLYTA [Suspect]
     Active Substance: AXITINIB
     Indication: Benign renal neoplasm
     Dosage: FREQUENCY : TWICE A DAY;?
     Route: 048

REACTIONS (4)
  - Blood urine present [None]
  - Hospitalisation [None]
  - Palmar-plantar erythrodysaesthesia syndrome [None]
  - Skin lesion [None]
